FAERS Safety Report 8033003-9 (Version None)
Quarter: 2012Q1

REPORT INFORMATION
  Report Type: 
  Country: None (occurrence: None)
  Receive Date: 20120110
  Receipt Date: 20120105
  Transmission Date: 20120608
  Serious: Yes (Life-Threatening, Other)
  Sender: FDA-Public Use
  Company Number: JP-JNJFOC-20111101941

PATIENT
  Sex: Female
  Weight: 42 kg

DRUGS (14)
  1. REMICADE [Suspect]
     Indication: RHEUMATOID ARTHRITIS
     Dosage: FIRST DOSE
     Route: 042
     Dates: start: 20080603
  2. REMICADE [Suspect]
     Route: 042
     Dates: start: 20100119
  3. REMICADE [Suspect]
     Dosage: 24TH INFUSION
     Route: 042
     Dates: start: 20111018
  4. EVISTA [Concomitant]
     Indication: OSTEOPOROSIS
     Route: 048
     Dates: start: 20070724
  5. DIOVAN [Concomitant]
     Indication: HYPERTENSION
     Route: 048
     Dates: start: 20110126
  6. SELBEX [Concomitant]
     Indication: RHEUMATOID ARTHRITIS
     Route: 048
     Dates: start: 20061002
  7. CEFAZOLIN SODIUM [Concomitant]
     Indication: GASTROENTERITIS
     Route: 048
     Dates: start: 20110412
  8. REMICADE [Suspect]
     Dosage: 23RD INFUSION
     Route: 042
     Dates: start: 20091124
  9. REMICADE [Suspect]
     Route: 042
  10. ETODOLAC [Concomitant]
     Indication: RHEUMATOID ARTHRITIS
     Route: 048
     Dates: start: 20061002
  11. FOLIC ACID [Concomitant]
     Indication: RHEUMATOID ARTHRITIS
     Route: 048
     Dates: start: 20061127
  12. PREDNISOLONE [Suspect]
     Indication: RHEUMATOID ARTHRITIS
     Route: 048
     Dates: start: 20061030
  13. METHOTREXATE [Concomitant]
     Indication: RHEUMATOID ARTHRITIS
     Route: 048
     Dates: start: 20061002
  14. ISONIAZID [Concomitant]
     Indication: ANTIBIOTIC PROPHYLAXIS
     Route: 048
     Dates: start: 20090224, end: 20110419

REACTIONS (3)
  - PNEUMONIA [None]
  - NASOPHARYNGITIS [None]
  - PULMONARY TUBERCULOSIS [None]
